FAERS Safety Report 7699569-3 (Version None)
Quarter: 2011Q3

REPORT INFORMATION
  Report Type: 
  Country: None (occurrence: None)
  Receive Date: 20110822
  Receipt Date: 20110810
  Transmission Date: 20111222
  Serious: Yes (Hospitalization)
  Sender: FDA-Public Use
  Company Number: US-BIOGENIDEC-2011BI019430

PATIENT
  Age: 50 Year
  Sex: Female

DRUGS (2)
  1. TYSABRI [Suspect]
     Indication: MULTIPLE SCLEROSIS
     Route: 042
     Dates: start: 20091228, end: 20110301
  2. TYSABRI [Suspect]
     Route: 042
     Dates: start: 20070913, end: 20081202

REACTIONS (4)
  - DRUG HYPERSENSITIVITY [None]
  - PROCEDURAL COMPLICATION [None]
  - COMPRESSION FRACTURE [None]
  - STAPHYLOCOCCAL SEPSIS [None]
